FAERS Safety Report 12531613 (Version 1)
Quarter: 2016Q3

REPORT INFORMATION
  Report Type: Spontaneous
  Country: US (occurrence: US)
  Receive Date: 20160706
  Receipt Date: 20160706
  Transmission Date: 20161109
  Serious: Yes (Hospitalization, Congenital Anomaly, Other)
  Sender: FDA-Public Use
  Company Number: US-MYLANLABS-2016M1028044

PATIENT

DRUGS (3)
  1. FLECAINIDE [Suspect]
     Active Substance: FLECAINIDE
     Indication: ARRHYTHMIA
     Route: 064
  2. DEXAMETHASONE. [Suspect]
     Active Substance: DEXAMETHASONE
     Indication: FOETAL CARDIAC DISORDER
     Dosage: 4 MG DAILY AND RESTARTED
     Route: 064
  3. DEXAMETHASONE. [Suspect]
     Active Substance: DEXAMETHASONE
     Dosage: RESTARTED AT HIGHER DOSE OF 8MG
     Route: 064

REACTIONS (6)
  - Foetal cardiac disorder [Not Recovered/Not Resolved]
  - Neonatal respiratory distress syndrome [Recovered/Resolved]
  - Right ventricular dysfunction [Unknown]
  - Foetal exposure during pregnancy [Recovered/Resolved]
  - Patent ductus arteriosus [Recovered/Resolved]
  - Vasoconstriction [Recovered/Resolved]
